FAERS Safety Report 21616222 (Version 1)
Quarter: 2022Q4

REPORT INFORMATION
  Report Type: Spontaneous
  Country: TN (occurrence: TN)
  Receive Date: 20221118
  Receipt Date: 20221118
  Transmission Date: 20230113
  Serious: Yes (Other)
  Sender: FDA-Public Use
  Company Number: TN-BAYER-2022P021468

PATIENT
  Age: 39 Year
  Sex: Female

DRUGS (1)
  1. BETAFERON [Suspect]
     Active Substance: INTERFERON BETA-1B
     Indication: Multiple sclerosis
     Dosage: ONE MONTH OF DAILY USE,

REACTIONS (2)
  - Dermatitis exfoliative generalised [Recovered/Resolved]
  - Pustular psoriasis [Recovered/Resolved]
